FAERS Safety Report 5455161-2 (Version None)
Quarter: 2007Q3

REPORT INFORMATION
  Report Type: 
  Country: None (occurrence: None)
  Receive Date: 20070914
  Receipt Date: 20070910
  Transmission Date: 20080115
  Serious: Yes (Other)
  Sender: FDA-Public Use
  Company Number: 2007AL003747

PATIENT
  Age: 35 Year
  Sex: Female

DRUGS (2)
  1. MIRTAZAPINE [Suspect]
     Indication: DEPRESSION
     Dosage: 45 MG; QD; PO
     Route: 048
     Dates: start: 20020912, end: 20060201
  2. SETAZINE [Concomitant]

REACTIONS (4)
  - MOBILITY DECREASED [None]
  - MUSCLE SPASMS [None]
  - PAIN IN EXTREMITY [None]
  - WHITE BLOOD CELL COUNT INCREASED [None]
